FAERS Safety Report 5149154-2 (Version None)
Quarter: 2006Q4

REPORT INFORMATION
  Report Type: 
  Country: None (occurrence: None)
  Receive Date: 20061113
  Receipt Date: 20060816
  Transmission Date: 20070319
  Serious: No
  Sender: FDA-Public Use
  Company Number: US-GLAXOSMITHKLINE-A0616944A

PATIENT
  Age: 84 Year
  Sex: Female

DRUGS (8)
  1. COREG [Suspect]
     Indication: DRUG USE FOR UNKNOWN INDICATION
     Dosage: 6.25MG TWICE PER DAY
     Route: 048
     Dates: start: 20060809
  2. SPIRONOLACTONE [Suspect]
     Indication: DRUG USE FOR UNKNOWN INDICATION
     Dosage: 50MG PER DAY
     Route: 048
     Dates: start: 20060809
  3. LASIX [Concomitant]
  4. LIPITOR [Concomitant]
  5. PLAVIX [Concomitant]
  6. NEXIUM [Concomitant]
  7. ACTOS [Concomitant]
  8. ALLOPURINOL [Concomitant]

REACTIONS (1)
  - DYSGEUSIA [None]
